FAERS Safety Report 11030351 (Version 4)
Quarter: 2015Q2

REPORT INFORMATION
  Report Type: Report from Study
  Country: BR (occurrence: BR)
  Receive Date: 20150415
  Receipt Date: 20150525
  Transmission Date: 20150821
  Serious: Yes (Death)
  Sender: FDA-Public Use
  Company Number: BR-ROCHE-1562763

PATIENT
  Age: 59 Year
  Sex: Female
  Weight: 54 kg

DRUGS (10)
  1. CARVEDILOL. [Concomitant]
     Active Substance: CARVEDILOL
     Route: 065
     Dates: start: 20150303
  2. CALTRATE [Concomitant]
     Active Substance: CALCIUM CARBONATE
     Route: 065
     Dates: start: 20130828
  3. FLUOXETINE [Concomitant]
     Active Substance: FLUOXETINE\FLUOXETINE HYDROCHLORIDE
     Route: 065
     Dates: start: 20130928
  4. TRASTUZUMAB EMTANSINE [Suspect]
     Active Substance: ADO-TRASTUZUMAB EMTANSINE
     Indication: HER-2 POSITIVE BREAST CANCER
     Dosage: LAST DOSE PRIOR TO EVENT: 24/MAR/2015
     Route: 042
     Dates: start: 20140218
  5. DIPYRONE [Concomitant]
     Active Substance: DIPYRONE
     Dosage: 40DROPS
     Route: 065
  6. TYLEX (BRAZIL) [Concomitant]
     Route: 065
     Dates: start: 20131028
  7. ZOMETA [Concomitant]
     Active Substance: ZOLEDRONIC ACID
     Route: 065
     Dates: start: 20140218
  8. GABAPENTIN. [Concomitant]
     Active Substance: GABAPENTIN
     Route: 065
     Dates: start: 20131028
  9. DIMORF [Concomitant]
     Active Substance: MORPHINE SULFATE
  10. DIPYRONE [Concomitant]
     Active Substance: DIPYRONE
     Dosage: TOTAL DAILY DOSE: 40 DROPS
     Route: 065
     Dates: start: 20131028

REACTIONS (1)
  - Pulmonary embolism [Fatal]

NARRATIVE: CASE EVENT DATE: 20150408
